FAERS Safety Report 15676036 (Version 1)
Quarter: 2018Q4

REPORT INFORMATION
  Report Type: Spontaneous
  Country: US (occurrence: US)
  Receive Date: 20181129
  Receipt Date: 20181129
  Transmission Date: 20190205
  Serious: Yes (Hospitalization, Other)
  Sender: FDA-Public Use
  Company Number: None

PATIENT
  Age: 27 Year
  Sex: Male
  Weight: 78.75 kg

DRUGS (1)
  1. GEODON [Suspect]
     Active Substance: ZIPRASIDONE HYDROCHLORIDE\ZIPRASIDONE MESYLATE
     Indication: BIPOLAR DISORDER
     Dosage: ?          QUANTITY:1 CAPSULE(S);?
     Route: 048
     Dates: start: 20181010, end: 20181108

REACTIONS (19)
  - Nasal congestion [None]
  - Testicular pain [None]
  - Tachyphrenia [None]
  - Constipation [None]
  - Thinking abnormal [None]
  - Dysarthria [None]
  - Blepharospasm [None]
  - Respiration abnormal [None]
  - Restlessness [None]
  - Anxiety [None]
  - Sensory disturbance [None]
  - Insomnia [None]
  - Panic attack [None]
  - Stress [None]
  - Head discomfort [None]
  - Injury [None]
  - Penis disorder [None]
  - Amnesia [None]
  - Feeling of despair [None]

NARRATIVE: CASE EVENT DATE: 20181106
